FAERS Safety Report 10735459 (Version 3)
Quarter: 2015Q2

REPORT INFORMATION
  Report Type: Report from Study
  Country: BE (occurrence: BE)
  Receive Date: 20150126
  Receipt Date: 20150513
  Transmission Date: 20150821
  Serious: Yes (Other)
  Sender: FDA-Public Use
  Company Number: BE-ROCHE-1523384

PATIENT

DRUGS (3)
  1. PEG-INTERFERON ALFA 2A [Suspect]
     Active Substance: PEGINTERFERON ALFA-2A
     Indication: CHRONIC HEPATITIS C
     Route: 058
  2. SIMEPREVIR [Suspect]
     Active Substance: SIMEPREVIR
     Indication: CHRONIC HEPATITIS C
     Dosage: TOTAL 12 WEEKS
     Route: 048
  3. RIBAVIRIN. [Suspect]
     Active Substance: RIBAVIRIN
     Indication: CHRONIC HEPATITIS C
     Dosage: 2 OR 3 TABLETS IN THE MORNING AND 3 TABLETS IN THE EVENING.?TOTAL DAILY DOSE AS PER BODY WEIGHT {75
     Route: 048

REACTIONS (11)
  - Neutropenia [Unknown]
  - Dyspnoea [Unknown]
  - Bradycardia [Unknown]
  - Hypoglycaemia [Unknown]
  - Angina pectoris [Unknown]
  - Diabetes mellitus [Unknown]
  - Pruritus [Unknown]
  - Anaemia [Unknown]
  - Spondylitic myelopathy [Unknown]
  - Photosensitivity reaction [Unknown]
  - Rash [Unknown]
